FAERS Safety Report 4416043-8 (Version None)
Quarter: 2004Q3

REPORT INFORMATION
  Report Type: 
  Country: None (occurrence: None)
  Receive Date: 20040730
  Receipt Date: 20040720
  Transmission Date: 20050211
  Serious: No
  Sender: FDA-Public Use
  Company Number: A122464

PATIENT
  Age: 54 Year
  Sex: Female
  Weight: 56.6996 kg

DRUGS (6)
  1. ZYRTEC [Suspect]
     Indication: MULTIPLE ALLERGIES
  2. DIGOXIN [Concomitant]
  3. ESTRADIOL [Concomitant]
  4. MEDROXYPROGESTERONE [Concomitant]
  5. LATANOPROST [Concomitant]
  6. CHONDROITIN/GLUCOSAMINE (CHONDROITIN, GLUCOSAMINE) [Concomitant]

REACTIONS (8)
  - ANGIONEUROTIC OEDEMA [None]
  - INJURY [None]
  - INTRAOCULAR PRESSURE INCREASED [None]
  - OCULOGYRATION [None]
  - RHINITIS ALLERGIC [None]
  - SWELLING FACE [None]
  - VISION BLURRED [None]
  - VISUAL ACUITY REDUCED [None]
